FAERS Safety Report 6360850-1 (Version None)
Quarter: 2009Q3

REPORT INFORMATION
  Report Type: 
  Country: None (occurrence: None)
  Receive Date: 20090918
  Receipt Date: 20090908
  Transmission Date: 20100115
  Serious: Yes (Other)
  Sender: FDA-Public Use
  Company Number: US-CELGENEUS-163-21880-09090709

PATIENT
  Sex: Male

DRUGS (3)
  1. REVLIMID [Suspect]
     Indication: MULTIPLE MYELOMA
     Route: 048
     Dates: start: 20071001
  2. REVLIMID [Suspect]
     Route: 048
     Dates: start: 20061201
  3. REVLIMID [Suspect]
     Dosage: 5-10MG
     Route: 048
     Dates: start: 20060401

REACTIONS (2)
  - DISEASE PROGRESSION [None]
  - MYELODYSPLASTIC SYNDROME [None]
